FAERS Safety Report 4399365-9 (Version None)
Quarter: 2004Q3

REPORT INFORMATION
  Report Type: 
  Country: None (occurrence: None)
  Receive Date: 20040712
  Receipt Date: 20040628
  Transmission Date: 20050211
  Serious: Yes (Other)
  Sender: FDA-Public Use
  Company Number: 2004043576

PATIENT
  Age: 17 Year
  Sex: Male
  Weight: 74.8435 kg

DRUGS (1)
  1. ZOLOFT [Suspect]
     Indication: ANXIETY DISORDER
     Dosage: (50 MG), ORAL
     Route: 048
     Dates: start: 20040601

REACTIONS (5)
  - ABDOMINAL PAIN UPPER [None]
  - DIZZINESS [None]
  - OVERDOSE [None]
  - TREATMENT NONCOMPLIANCE [None]
  - TREMOR [None]
